FAERS Safety Report 8095475-3 (Version None)
Quarter: 2012Q1

REPORT INFORMATION
  Report Type: 
  Country: None (occurrence: None)
  Receive Date: 20120129
  Receipt Date: 20111216
  Transmission Date: 20120608
  Serious: No
  Sender: FDA-Public Use
  Company Number: US-ABBOTT-11P-163-0884277-00

PATIENT
  Age: 57 Year
  Sex: Male

DRUGS (4)
  1. BISOPROLOL FUMARATE AND HYDROCHLOROTHIAZIDE [Concomitant]
     Indication: HYPERTENSION
     Dosage: 2.5 MG EVERY DAY
  2. ENTOCORT EC [Concomitant]
     Indication: CROHN'S DISEASE
     Dosage: 3 MG EVERY DAY
  3. FELODIPINE [Concomitant]
     Indication: HYPERTENSION
     Dosage: 10 MG EVERY DAY
  4. HUMIRA [Suspect]
     Indication: CROHN'S DISEASE
     Dosage: INTERRUPTED D/T AE
     Dates: start: 20111117, end: 20111215

REACTIONS (2)
  - PNEUMONIA [None]
  - INSOMNIA [None]
